FAERS Safety Report 7714531-X (Version None)
Quarter: 2011Q3

REPORT INFORMATION
  Report Type: 
  Country: None (occurrence: None)
  Receive Date: 20110804
  Receipt Date: 20110517
  Transmission Date: 20111222
  Serious: No
  Sender: FDA-Public Use
  Company Number: 2011-06780

PATIENT
  Age: 75 Year
  Sex: Female
  Weight: 78.9 kg

DRUGS (9)
  1. AMLODIPINE [Concomitant]
  2. LIPITOR [Concomitant]
  3. RAPAFLO [Suspect]
  4. ASPIRIN [Concomitant]
  5. CALTRATE /00108001/ (CALCIUM CARBONATE) [Concomitant]
  6. RAPAFLO [Suspect]
     Indication: URINARY RETENTION
     Dosage: 1 TABLET WITH DINNER AT 7PM, ORAL
     Route: 048
     Dates: start: 20110512, end: 20110501
  7. RAPAFLO [Suspect]
     Indication: URINARY RETENTION
     Dosage: 1 TABLET WITH DINNER AT 7PM, ORAL
     Route: 048
     Dates: start: 20110501
  8. CENTRUM /00554501/ (MINERALS NOS, VITAMINS NOS) [Concomitant]
  9. ATENOLOL [Concomitant]

REACTIONS (6)
  - URINARY INCONTINENCE [None]
  - POLLAKIURIA [None]
  - DYSURIA [None]
  - MICTURITION URGENCY [None]
  - INSOMNIA [None]
  - FATIGUE [None]
